FAERS Safety Report 12051179 (Version 1)
Quarter: 2016Q1

REPORT INFORMATION
  Report Type: Spontaneous
  Country: US (occurrence: None)
  Receive Date: 20160208
  Receipt Date: 20160208
  Transmission Date: 20160526
  Serious: Yes (Life-Threatening)
  Sender: FDA-Public Use
  Company Number: None

PATIENT
  Age: 81 Year
  Sex: Female
  Weight: 58.97 kg

DRUGS (5)
  1. ALPRAZOLAM. [Concomitant]
     Active Substance: ALPRAZOLAM
  2. SENNA [Concomitant]
     Active Substance: SENNA LEAF\SENNOSIDES\SENNOSIDES A AND B
  3. RISPERIDONE 1MG/ML AMNEAL PHARMACEUTICALS [Suspect]
     Active Substance: RISPERIDONE
     Indication: PRODUCT USED FOR UNKNOWN INDICATION
     Route: 048
     Dates: start: 20160204, end: 20160205
  4. MORPHINE [Concomitant]
     Active Substance: MORPHINE
  5. SUPPOSITORIES [Concomitant]

REACTIONS (5)
  - Dyspnoea [None]
  - Seizure [None]
  - Sedation [None]
  - Eye disorder [None]
  - Vomiting [None]

NARRATIVE: CASE EVENT DATE: 20160205
